FAERS Safety Report 14013763 (Version 1)
Quarter: 2017Q3

REPORT INFORMATION
  Report Type: Report from Study
  Country: US (occurrence: US)
  Receive Date: 20170926
  Receipt Date: 20170926
  Transmission Date: 20171128
  Serious: Yes (Death)
  Sender: FDA-Public Use
  Company Number: US-PFIZER INC-2017415123

PATIENT
  Age: 50 Year
  Sex: Female

DRUGS (2)
  1. METOPROLOL TARTRATE. [Suspect]
     Active Substance: METOPROLOL TARTRATE
     Dosage: UNK
  2. VERAPAMIL HCL [Suspect]
     Active Substance: VERAPAMIL HYDROCHLORIDE
     Dosage: UNK

REACTIONS (10)
  - Hypotension [Fatal]
  - Bradycardia [Fatal]
  - Ventricular arrhythmia [Fatal]
  - Metabolic acidosis [Fatal]
  - Coma [Fatal]
  - Coagulopathy [Fatal]
  - Toxicity to various agents [Fatal]
  - Respiratory depression [Fatal]
  - Acute kidney injury [Fatal]
  - Atrioventricular block [Fatal]
